FAERS Safety Report 21976574 (Version 3)
Quarter: 2023Q1

REPORT INFORMATION
  Report Type: Spontaneous
  Country: US (occurrence: US)
  Receive Date: 20230210
  Receipt Date: 20230307
  Transmission Date: 20230417
  Serious: No
  Sender: FDA-Public Use
  Company Number: US-PFIZER INC-202300054166

PATIENT
  Age: 12 Year
  Sex: Male
  Weight: 69.201 kg

DRUGS (1)
  1. GENOTROPIN [Suspect]
     Active Substance: SOMATROPIN
     Indication: Growth hormone deficiency
     Dosage: 2.6 ML (SIX DAYS A WEEK)
     Route: 058
     Dates: start: 2013

REACTIONS (2)
  - Device use issue [Unknown]
  - Device information output issue [Unknown]

NARRATIVE: CASE EVENT DATE: 20200101
